FAERS Safety Report 25593843 (Version 1)
Quarter: 2025Q3

REPORT INFORMATION
  Report Type: Report from Study
  Country: IN (occurrence: IN)
  Receive Date: 20250723
  Receipt Date: 20250723
  Transmission Date: 20251020
  Serious: Yes (Hospitalization, Other)
  Sender: NOVARTIS
  Company Number: IN-002147023-NVSC2025IN115853

PATIENT
  Age: 45 Year
  Sex: Female

DRUGS (4)
  1. DABRAFENIB [Suspect]
     Active Substance: DABRAFENIB
     Indication: Cholangiocarcinoma
     Dosage: 150 MG, BID
     Route: 048
     Dates: start: 20250307
  2. DABRAFENIB [Suspect]
     Active Substance: DABRAFENIB
     Dosage: 75 MG, BID
     Route: 065
     Dates: start: 20250401
  3. TRAMETINIB [Suspect]
     Active Substance: TRAMETINIB
     Indication: Cholangiocarcinoma
     Dosage: 2 MG, QD
     Route: 048
     Dates: start: 20250307
  4. TRAMETINIB [Suspect]
     Active Substance: TRAMETINIB
     Route: 065
     Dates: start: 20250401

REACTIONS (19)
  - Neuropathy peripheral [Unknown]
  - Hypertension [Unknown]
  - Hypotension [Not Recovered/Not Resolved]
  - Weight decreased [Unknown]
  - Pyrexia [Not Recovered/Not Resolved]
  - Thrombophlebitis [Unknown]
  - Cellulitis [Unknown]
  - Therapy partial responder [Unknown]
  - Headache [Unknown]
  - Back pain [Recovered/Resolved]
  - Chills [Not Recovered/Not Resolved]
  - Oropharyngeal pain [Not Recovered/Not Resolved]
  - Carbohydrate antigen 19-9 increased [Unknown]
  - Pruritus [Unknown]
  - Abdominal pain [Unknown]
  - Vaginal haemorrhage [Unknown]
  - Haemoglobin abnormal [Unknown]
  - White blood cell count abnormal [Unknown]
  - Dyspepsia [Unknown]

NARRATIVE: CASE EVENT DATE: 20250313
